FAERS Safety Report 4660592-4 (Version None)
Quarter: 2005Q2

REPORT INFORMATION
  Report Type: 
  Country: None (occurrence: None)
  Receive Date: 20050425
  Receipt Date: 20041022
  Transmission Date: 20051028
  Serious: No
  Sender: FDA-Public Use
  Company Number: US096537

PATIENT
  Sex: Male

DRUGS (1)
  1. SENSIPAR [Suspect]
     Indication: HYPERPARATHYROIDISM SECONDARY
     Dosage: 30 MG, 1 IN 1 DAYS,PO
     Route: 048
     Dates: start: 20040927

REACTIONS (1)
  - BLOOD PHOSPHORUS INCREASED [None]
